FAERS Safety Report 21115527 (Version 1)
Quarter: 2022Q3

REPORT INFORMATION
  Report Type: Other
  Country: RU (occurrence: RU)
  Receive Date: 20220721
  Receipt Date: 20220721
  Transmission Date: 20221027
  Serious: Yes (Death)
  Sender: FDA-Public Use
  Company Number: RU-DECIPHERA PHARMACEUTICALS LLC-2022RU000609

PATIENT
  Sex: Male

DRUGS (1)
  1. RIPRETINIB [Suspect]
     Active Substance: RIPRETINIB
     Indication: Gastrointestinal stromal tumour
     Dosage: UNK
     Dates: start: 20200626, end: 20210406

REACTIONS (2)
  - Death [Fatal]
  - Disease progression [Unknown]

NARRATIVE: CASE EVENT DATE: 20210406
